FAERS Safety Report 21371482 (Version 1)
Quarter: 2022Q3

REPORT INFORMATION
  Report Type: Spontaneous
  Country: US (occurrence: None)
  Receive Date: 20220922
  Receipt Date: 20220922
  Transmission Date: 20221026
  Serious: Yes (Death)
  Sender: FDA-Public Use
  Company Number: None

PATIENT
  Age: 84 Year
  Sex: Male
  Weight: 62.6 kg

DRUGS (5)
  1. CISPLATIN [Suspect]
     Active Substance: CISPLATIN
     Indication: Colon cancer
     Dosage: FREQUENCY : AS DIRECTED;?
     Route: 042
     Dates: start: 202206
  2. PACLITAXEL PROTEIN-BOUND PARTICLES FOR INJECTABLE SUSPENSION (ALBUMIN- [Suspect]
     Active Substance: PACLITAXEL
     Indication: Colon cancer
     Dosage: OTHER FREQUENCY : DAY 1,8,15;?
     Route: 042
     Dates: start: 202206
  3. IRINOTECAN [Suspect]
     Active Substance: IRINOTECAN
     Dosage: OTHER FREQUENCY : DAY1,8,15 AND 22;?
  4. VITAMIN D3 [Concomitant]
     Active Substance: CHOLECALCIFEROL
  5. ZOFRAN [Concomitant]
     Active Substance: ONDANSETRON HYDROCHLORIDE

REACTIONS (1)
  - Death [None]
